FAERS Safety Report 11591468 (Version 1)
Quarter: 2015Q4

REPORT INFORMATION
  Report Type: Spontaneous
  Country: BR (occurrence: BR)
  Receive Date: 20151005
  Receipt Date: 20151005
  Transmission Date: 20160304
  Serious: No
  Sender: FDA-Public Use
  Company Number: BR-NOVEN PHARMACEUTICALS, INC.-14BR010863

PATIENT
  Age: 83 Year
  Sex: Female

DRUGS (1)
  1. ESTRADIOL/NORETHINDRONE ACETATE [Suspect]
     Active Substance: ESTRADIOL\NORETHINDRONE ACETATE
     Indication: URINARY INCONTINENCE
     Dosage: 50/140UG/DAY, EVERY 4 DAYS
     Route: 062

REACTIONS (4)
  - Hyperhidrosis [Unknown]
  - Off label use [Unknown]
  - Product quality issue [Unknown]
  - Wrong technique in product usage process [Unknown]
